FAERS Safety Report 9064381 (Version 1)
Quarter: 2013Q1

REPORT INFORMATION
  Report Type: Spontaneous
  Country: GB (occurrence: GB)
  Receive Date: 20130213
  Receipt Date: 20130213
  Transmission Date: 20140127
  Serious: Yes (Hospitalization)
  Sender: FDA-Public Use
  Company Number: GB-MYLANLABS-2013S1002402

PATIENT
  Age: 32 Year
  Sex: Male

DRUGS (4)
  1. CARBAMAZEPINE [Suspect]
     Indication: OVERDOSE
     Dosage: ESTIMATED DOSE 631 MG/KG
     Route: 065
  2. CARBAMAZEPINE [Suspect]
     Indication: OVERDOSE
     Route: 065
  3. CHLORPROMAZINE [Suspect]
     Indication: OVERDOSE
     Route: 065
  4. CLONAZEPAM [Suspect]
     Indication: OVERDOSE
     Route: 065

REACTIONS (6)
  - Overdose [Recovered/Resolved]
  - Neurological decompensation [Recovered/Resolved]
  - Respiratory depression [Recovered/Resolved]
  - Acute respiratory distress syndrome [Recovered/Resolved]
  - Hypotension [Recovered/Resolved]
  - Electrocardiogram QT prolonged [Recovered/Resolved]
